FAERS Safety Report 13030741 (Version 1)
Quarter: 2016Q4

REPORT INFORMATION
  Report Type: Spontaneous
  Country: US (occurrence: US)
  Receive Date: 20161215
  Receipt Date: 20161215
  Transmission Date: 20170207
  Serious: Yes (Disabling)
  Sender: FDA-Public Use
  Company Number: None

PATIENT
  Age: 39 Year
  Sex: Female
  Weight: 56.25 kg

DRUGS (1)
  1. EFFEXOR XR [Suspect]
     Active Substance: VENLAFAXINE HYDROCHLORIDE
     Indication: ANXIETY
     Dosage: ?          QUANTITY:1 CAPSULE(S);?
     Route: 048

REACTIONS (18)
  - Photophobia [None]
  - Irritability [None]
  - Disturbance in attention [None]
  - Impaired work ability [None]
  - Withdrawal syndrome [None]
  - Decreased activity [None]
  - Multiple chemical sensitivity [None]
  - Asthenia [None]
  - Feeling abnormal [None]
  - Poor quality sleep [None]
  - Mast cell activation syndrome [None]
  - Hypoglycaemia [None]
  - Hyperacusis [None]
  - Temperature intolerance [None]
  - Hypotension [None]
  - Fatigue [None]
  - Bedridden [None]
  - Food intolerance [None]

NARRATIVE: CASE EVENT DATE: 20130901
